FAERS Safety Report 4564720-0 (Version None)
Quarter: 2005Q1

REPORT INFORMATION
  Report Type: 
  Country: None (occurrence: None)
  Receive Date: 20050128
  Receipt Date: 20050119
  Transmission Date: 20050727
  Serious: Yes (Hospitalization, Other)
  Sender: FDA-Public Use
  Company Number: US-ABBOTT-05P-163-0287943-00

PATIENT
  Sex: Male

DRUGS (2)
  1. HUMIRA [Suspect]
     Indication: RHEUMATOID ARTHRITIS
     Route: 058
  2. PNEUMONIA SHOT [Concomitant]
     Indication: DRUG USE FOR UNKNOWN INDICATION

REACTIONS (6)
  - COMA [None]
  - MUSCLE ATROPHY [None]
  - NERVE INJURY [None]
  - PNEUMONIA [None]
  - PULMONARY FIBROSIS [None]
  - RESPIRATORY FAILURE [None]
